FAERS Safety Report 8548052-1 (Version None)
Quarter: 2012Q3

REPORT INFORMATION
  Report Type: 
  Country: None (occurrence: None)
  Receive Date: 20120730
  Receipt Date: 20120724
  Transmission Date: 20120928
  Serious: Yes (Hospitalization, Other)
  Sender: FDA-Public Use
  Company Number: US-ROCHE-1092536

PATIENT
  Sex: Female
  Weight: 54.934 kg

DRUGS (2)
  1. MABTHERA [Suspect]
     Indication: CHRONIC LYMPHOCYTIC LEUKAEMIA
     Dosage: FOR 4 TREATMENTS
     Route: 042
     Dates: start: 20120301, end: 20120601
  2. LASIX [Concomitant]
     Indication: FLUID RETENTION
     Route: 048
     Dates: start: 20120601

REACTIONS (3)
  - DYSPNOEA [None]
  - WEIGHT DECREASED [None]
  - WHITE BLOOD CELL COUNT DECREASED [None]
